FAERS Safety Report 19077670 (Version 3)
Quarter: 2021Q2

REPORT INFORMATION
  Report Type: Report from Study
  Country: AU (occurrence: AU)
  Receive Date: 20210331
  Receipt Date: 20210426
  Transmission Date: 20210717
  Serious: Yes (Death)
  Sender: FDA-Public Use
  Company Number: AU-CELGENEUS-AUS-20210307574

PATIENT
  Age: 80 Year
  Sex: Male

DRUGS (32)
  1. AZACITIDINE ORAL (CC?486) [Suspect]
     Active Substance: AZACITIDINE
     Dosage: 300 MILLIGRAM
     Route: 048
     Dates: start: 20200629, end: 20200814
  2. BACLOFEN. [Concomitant]
     Active Substance: BACLOFEN
     Indication: BACK PAIN
     Route: 065
     Dates: start: 201501
  3. VITAMIN C [Concomitant]
     Active Substance: ASCORBIC ACID
     Indication: VITAMIN SUPPLEMENTATION
     Route: 065
     Dates: start: 2002
  4. VITAMIN E [Concomitant]
     Active Substance: .ALPHA.-TOCOPHEROL
     Indication: VITAMIN SUPPLEMENTATION
     Route: 065
     Dates: start: 2002
  5. AZACITIDINE ORAL (CC?486) [Suspect]
     Active Substance: AZACITIDINE
     Indication: MYELODYSPLASTIC SYNDROME
     Route: 048
     Dates: start: 20200113, end: 20200503
  6. TRAMADOL ER [Concomitant]
     Active Substance: TRAMADOL HYDROCHLORIDE
     Indication: BACK PAIN
     Route: 065
     Dates: start: 201601
  7. ENDONE [Concomitant]
     Active Substance: OXYCODONE HYDROCHLORIDE
     Indication: OSTEOPOROSIS
  8. MAGNESIUM [Concomitant]
     Active Substance: MAGNESIUM
     Indication: VITAMIN SUPPLEMENTATION
     Route: 065
     Dates: start: 2002
  9. AZACITIDINE ORAL (CC?486) [Suspect]
     Active Substance: AZACITIDINE
     Indication: ACUTE MYELOID LEUKAEMIA
     Dosage: 200 MILLIGRAM
     Route: 048
     Dates: start: 20200504, end: 20200621
  10. AMITRYPTILINE [Concomitant]
     Active Substance: AMITRIPTYLINE
     Indication: SLEEP DISORDER
     Route: 065
     Dates: start: 2020
  11. ENDONE [Concomitant]
     Active Substance: OXYCODONE HYDROCHLORIDE
     Indication: BACK PAIN
     Route: 065
     Dates: start: 20191224
  12. SUSTAGEN [Concomitant]
     Indication: SUPPLEMENTATION THERAPY
     Route: 065
     Dates: start: 20191224
  13. MAXOLON [Concomitant]
     Active Substance: METOCLOPRAMIDE HYDROCHLORIDE
     Indication: NAUSEA
     Route: 065
     Dates: start: 20191224
  14. GABAPENTINE [Concomitant]
     Active Substance: GABAPENTIN
     Route: 065
  15. TRAMADOL ER [Concomitant]
     Active Substance: TRAMADOL HYDROCHLORIDE
     Indication: OSTEOPOROSIS
  16. ROSUVASTATIN. [Concomitant]
     Active Substance: ROSUVASTATIN
     Indication: DYSLIPIDAEMIA
     Route: 065
     Dates: start: 201501
  17. IRBESARTAN. [Concomitant]
     Active Substance: IRBESARTAN
     Indication: MYOCARDIAL ISCHAEMIA
     Route: 065
     Dates: start: 201802
  18. TARGIN [Concomitant]
     Active Substance: NALOXONE HYDROCHLORIDE\OXYCODONE HYDROCHLORIDE
     Indication: OSTEOPOROSIS
     Route: 065
  19. TAMSULOSIN [Concomitant]
     Active Substance: TAMSULOSIN
     Indication: BENIGN PROSTATIC HYPERPLASIA
     Route: 065
     Dates: start: 201501
  20. TARGIN [Concomitant]
     Active Substance: NALOXONE HYDROCHLORIDE\OXYCODONE HYDROCHLORIDE
     Indication: BACK PAIN
     Route: 065
     Dates: start: 201601
  21. BACLOFEN. [Concomitant]
     Active Substance: BACLOFEN
     Indication: OSTEOPOROSIS
  22. GABAPENTINE [Concomitant]
     Active Substance: GABAPENTIN
     Indication: BACK PAIN
     Route: 065
     Dates: start: 2002
  23. GABAPENTINE [Concomitant]
     Active Substance: GABAPENTIN
     Route: 065
     Dates: start: 2020
  24. AMITRYPTILINE [Concomitant]
     Active Substance: AMITRIPTYLINE
     Indication: BACK PAIN
     Route: 065
     Dates: start: 2002
  25. PANTOPRAZOLE [Concomitant]
     Active Substance: PANTOPRAZOLE
     Indication: GASTROOESOPHAGEAL REFLUX DISEASE
     Route: 065
     Dates: start: 201501
  26. ZINC. [Concomitant]
     Active Substance: ZINC
     Indication: VITAMIN SUPPLEMENTATION
     Route: 065
     Dates: start: 2002
  27. MOVICOL [Concomitant]
     Active Substance: POLYETHYLENE GLYCOL 3350\POTASSIUM CHLORIDE\SODIUM BICARBONATE\SODIUM CHLORIDE
     Indication: CONSTIPATION
     Route: 065
     Dates: start: 201907
  28. MORPHINE [Concomitant]
     Active Substance: MORPHINE
     Indication: PAIN PROPHYLAXIS
     Route: 065
     Dates: start: 202009
  29. TESTOSTERONE. [Concomitant]
     Active Substance: TESTOSTERONE
     Indication: SECONDARY HYPOGONADISM
     Route: 065
     Dates: start: 201501
  30. GABAPENTINE [Concomitant]
     Active Substance: GABAPENTIN
     Route: 065
  31. VALTREX [Concomitant]
     Active Substance: VALACYCLOVIR HYDROCHLORIDE
     Indication: ANTIVIRAL PROPHYLAXIS
     Route: 065
     Dates: start: 20191224
  32. LACTULOSE. [Concomitant]
     Active Substance: LACTULOSE
     Indication: CONSTIPATION
     Dosage: 5?10ML
     Route: 065
     Dates: start: 201907

REACTIONS (1)
  - Myelodysplastic syndrome [Fatal]

NARRATIVE: CASE EVENT DATE: 20200917
